FAERS Safety Report 18134977 (Version 1)
Quarter: 2020Q3

REPORT INFORMATION
  Report Type: Spontaneous
  Country: US (occurrence: US)
  Receive Date: 20200811
  Receipt Date: 20200811
  Transmission Date: 20201103
  Serious: Yes (Other)
  Sender: FDA-Public Use
  Company Number: US-PFIZER INC-2020304349

PATIENT
  Sex: Female
  Weight: 90.72 kg

DRUGS (1)
  1. EFFEXOR XR [Suspect]
     Active Substance: VENLAFAXINE HYDROCHLORIDE
     Dosage: UNK
     Dates: start: 1992

REACTIONS (8)
  - Insomnia [Unknown]
  - Suicidal ideation [Unknown]
  - Drug dependence [Unknown]
  - Feeling abnormal [Unknown]
  - Agitation [Unknown]
  - Withdrawal syndrome [Unknown]
  - Eating disorder [Unknown]
  - Disturbance in attention [Unknown]
